FAERS Safety Report 20530214 (Version 8)
Quarter: 2022Q2

REPORT INFORMATION
  Report Type: Report from Study
  Country: US (occurrence: US)
  Receive Date: 20220301
  Receipt Date: 20220606
  Transmission Date: 20220721
  Serious: No
  Sender: FDA-Public Use
  Company Number: US-NOVARTISTESTPH-NVSC2022US048394

PATIENT
  Sex: Female

DRUGS (2)
  1. MAYZENT [Suspect]
     Active Substance: SIPONIMOD
     Indication: Multiple sclerosis
     Dosage: 2 MG, QD
     Route: 048
     Dates: start: 202202
  2. GABAPENTIN [Concomitant]
     Active Substance: GABAPENTIN
     Indication: Product used for unknown indication
     Dosage: 600 MG, TID
     Route: 065

REACTIONS (5)
  - Muscle spasms [Unknown]
  - Asthenia [Unknown]
  - Pyrexia [Recovered/Resolved]
  - Dizziness [Unknown]
  - Headache [Unknown]
